FAERS Safety Report 4441666-X (Version None)
Quarter: 2004Q3

REPORT INFORMATION
  Report Type: 
  Country: None (occurrence: None)
  Receive Date: 20040907
  Receipt Date: 20040826
  Transmission Date: 20050211
  Serious: Yes (Hospitalization)
  Sender: FDA-Public Use
  Company Number: FR-JNJFOC-20040808760

PATIENT
  Age: 92 Year
  Sex: Female

DRUGS (4)
  1. ACETAMINOPHEN AND TRAMADOL HCL [Suspect]
     Indication: BACK PAIN
     Dosage: 6 TABLETS/DAILY.
     Route: 049
  2. PREVISCAN [Interacting]
     Indication: DRUG USE FOR UNKNOWN INDICATION
     Route: 049
  3. LEVOTHYROXINE SODIUM [Concomitant]
     Route: 049
  4. TAREG [Concomitant]
     Route: 049

REACTIONS (11)
  - CARDIAC MURMUR [None]
  - CEREBRAL HAEMATOMA [None]
  - CONFUSIONAL STATE [None]
  - DISORIENTATION [None]
  - DRUG INTERACTION [None]
  - FALL [None]
  - HYPONATRAEMIA [None]
  - INTERNATIONAL NORMALISED RATIO INCREASED [None]
  - OVERDOSE [None]
  - PROTHROMBIN TIME PROLONGED [None]
  - SOMNOLENCE [None]
